FAERS Safety Report 6303773-6 (Version None)
Quarter: 2009Q3

REPORT INFORMATION
  Report Type: 
  Country: None (occurrence: None)
  Receive Date: 20090805
  Receipt Date: 20090727
  Transmission Date: 20100115
  Serious: Yes (Disabling, Other)
  Sender: FDA-Public Use
  Company Number: 2009-03015

PATIENT
  Age: 47 Year
  Sex: Male

DRUGS (8)
  1. VELCADE [Suspect]
     Indication: MULTIPLE MYELOMA
     Dosage: 1.3 MG/M2
     Dates: start: 20080908
  2. VELCADE [Suspect]
     Indication: MULTIPLE MYELOMA
     Dosage: 1.3 MG/M2
     Dates: start: 20090305
  3. REVLIMID [Suspect]
     Indication: MULTIPLE MYELOMA
     Dosage: 15 MG, ORAL
     Route: 048
     Dates: start: 20080919
  4. REVLIMID [Suspect]
     Indication: MULTIPLE MYELOMA
     Dosage: 15 MG, ORAL
     Route: 048
     Dates: start: 20090301
  5. DEXAMETHASONE TAB [Suspect]
     Indication: MULTIPLE MYELOMA
     Dosage: 20 MG, ORAL
     Route: 048
     Dates: start: 20080908, end: 20090306
  6. DEXAMETHASONE TAB [Suspect]
     Indication: MULTIPLE MYELOMA
     Dosage: 20 MG, ORAL
     Route: 048
     Dates: start: 20090305
  7. CYCLOPHOSPHAMIDE [Suspect]
     Indication: MULTIPLE MYELOMA
     Dates: start: 20081128
  8. MELPHALAN(MELPHALAN) [Suspect]
     Indication: MULTIPLE MYELOMA
     Dates: start: 20081231

REACTIONS (16)
  - AGITATION [None]
  - AMYLOIDOSIS [None]
  - CARDIAC FAILURE CONGESTIVE [None]
  - DIARRHOEA HAEMORRHAGIC [None]
  - DISEASE PROGRESSION [None]
  - ERYTHEMA [None]
  - GASTROINTESTINAL INFLAMMATION [None]
  - HYPOTENSION [None]
  - LOBAR PNEUMONIA [None]
  - MALABSORPTION [None]
  - NEUROPATHY PERIPHERAL [None]
  - NEUTROPENIC SEPSIS [None]
  - OEDEMA PERIPHERAL [None]
  - OSTEOMYELITIS [None]
  - PULMONARY FUNCTION TEST ABNORMAL [None]
  - WEIGHT DECREASED [None]
